FAERS Safety Report 7767964-X (Version None)
Quarter: 2011Q3

REPORT INFORMATION
  Report Type: 
  Country: None (occurrence: None)
  Receive Date: 20110922
  Receipt Date: 20110718
  Transmission Date: 20111222
  Serious: Yes (Other)
  Sender: FDA-Public Use
  Company Number: US-ASTRAZENECA-2008UW27254

PATIENT
  Age: 21 Year
  Sex: Female
  Weight: 54 kg

DRUGS (7)
  1. SEROQUEL [Suspect]
     Route: 048
  2. GEODON [Concomitant]
     Indication: ANGER
  3. THORAZINE [Concomitant]
     Indication: SLEEP DISORDER
  4. ZOLOFT [Concomitant]
     Indication: DEPRESSION
  5. ZOLADEX [Concomitant]
     Dates: start: 20060201
  6. ABILIFY [Concomitant]
     Indication: MOOD SWINGS
  7. HALDOL [Concomitant]
     Indication: ANGER

REACTIONS (10)
  - DIABETES MELLITUS [None]
  - STRESS URINARY INCONTINENCE [None]
  - INSULIN RESISTANCE [None]
  - VESICOURETERIC REFLUX [None]
  - MICTURITION URGENCY [None]
  - URGE INCONTINENCE [None]
  - CYSTITIS INTERSTITIAL [None]
  - URINARY RETENTION [None]
  - PANCREATITIS [None]
  - ADVERSE DRUG REACTION [None]
